FAERS Safety Report 20850488 (Version 1)
Quarter: 2022Q2

REPORT INFORMATION
  Report Type: Spontaneous
  Country: ES (occurrence: ES)
  Receive Date: 20220519
  Receipt Date: 20220519
  Transmission Date: 20220721
  Serious: Yes (Death, Hospitalization)
  Sender: FDA-Public Use
  Company Number: ES-HOSPIRA-2839192

PATIENT
  Age: 78 Year
  Sex: Male

DRUGS (2)
  1. OXALIPLATIN [Suspect]
     Active Substance: OXALIPLATIN
     Indication: Adenocarcinoma of colon
     Dosage: A TOTAL OF 8 CYCLES
  2. RALTITREXED [Suspect]
     Active Substance: RALTITREXED
     Indication: Adenocarcinoma of colon
     Dosage: A TOTAL OF 8 CYCLES

REACTIONS (2)
  - Interstitial lung disease [Fatal]
  - Respiratory failure [Fatal]
